FAERS Safety Report 5825446-6 (Version None)
Quarter: 2008Q3

REPORT INFORMATION
  Report Type: 
  Country: None (occurrence: None)
  Receive Date: 20080729
  Receipt Date: 20071207
  Transmission Date: 20090109
  Serious: No
  Sender: FDA-Public Use
  Company Number: US-BAYER-200712737BCC

PATIENT
  Age: 63 Year
  Sex: Female
  Weight: 66 kg

DRUGS (6)
  1. ALEVE (CAPLET) [Suspect]
     Indication: ARTHRITIS
     Dosage: TOTAL DAILY DOSE: 880 MG  UNIT DOSE: 220 MG
     Route: 048
     Dates: start: 20070808, end: 20070811
  2. ALEVE (CAPLET) [Suspect]
     Dosage: TOTAL DAILY DOSE: 440 MG  UNIT DOSE: 220 MG
     Route: 048
     Dates: start: 20070812
  3. IBUPROFEN [Suspect]
     Indication: ARTHRITIS
     Dates: start: 20070812
  4. ESTROGENIC SUBSTANCE [Concomitant]
  5. VITAMIN TAB [Concomitant]
  6. CORTISONE SHOT [Concomitant]
     Indication: PAIN IN EXTREMITY

REACTIONS (5)
  - AGITATION [None]
  - INSOMNIA [None]
  - NERVOUSNESS [None]
  - PALPITATIONS [None]
  - URINARY TRACT INFECTION [None]
